FAERS Safety Report 7857898-4 (Version None)
Quarter: 2011Q4

REPORT INFORMATION
  Report Type: 
  Country: None (occurrence: None)
  Receive Date: 20111027
  Receipt Date: 20110215
  Transmission Date: 20120403
  Serious: No
  Sender: FDA-Public Use
  Company Number: US-BAYER-2011-015949

PATIENT
  Sex: Female
  Weight: 61 kg

DRUGS (4)
  1. HYDROXYCHLOROQUINE SULFATE [Concomitant]
     Dosage: 200 MG, UNK
     Route: 048
  2. ZOLOFT [Concomitant]
     Dosage: DAILY, ONCE
     Route: 048
  3. SYNTHROID [Concomitant]
     Dosage: DAILY, ONCE
     Route: 048
  4. ALEVE (CAPLET) [Suspect]
     Indication: PRODUCT USED FOR UNKNOWN INDICATION
     Dosage: DAILY, TID
     Route: 048

REACTIONS (1)
  - NO ADVERSE EVENT [None]
